FAERS Safety Report 10218458 (Version 1)
Quarter: 2014Q2

REPORT INFORMATION
  Report Type: Spontaneous
  Country: DE (occurrence: DE)
  Receive Date: 20140605
  Receipt Date: 20140605
  Transmission Date: 20141212
  Serious: Yes (Other)
  Sender: FDA-Public Use
  Company Number: PHHY2014DE067885

PATIENT
  Age: 80 Year
  Sex: Male

DRUGS (1)
  1. DAFIRO HCT [Suspect]
     Dosage: UNK UKN, UNK

REACTIONS (1)
  - Eczema [Unknown]
